FAERS Safety Report 23960044 (Version 6)
Quarter: 2024Q4

REPORT INFORMATION
  Report Type: Report from Study
  Country: CA (occurrence: CA)
  Receive Date: 20240611
  Receipt Date: 20241003
  Transmission Date: 20250115
  Serious: Yes (Hospitalization, Other)
  Sender: JOHNSON AND JOHNSON
  Company Number: CA-JNJFOC-20240617628

PATIENT
  Age: 54 Year
  Sex: Female
  Weight: 88 kg

DRUGS (14)
  1. REMICADE [Suspect]
     Active Substance: INFLIXIMAB
     Indication: Sarcoidosis
     Route: 041
     Dates: start: 20200903
  2. REMICADE [Suspect]
     Active Substance: INFLIXIMAB
     Route: 041
     Dates: start: 20010514
  3. REMICADE [Suspect]
     Active Substance: INFLIXIMAB
     Dosage: 9 VIALS
     Route: 041
     Dates: start: 20200903
  4. PREDNISONE [Concomitant]
     Active Substance: PREDNISONE
  5. METHOTREXATE [Concomitant]
     Active Substance: METHOTREXATE
  6. BISOPROLOL [Concomitant]
     Active Substance: BISOPROLOL\BISOPROLOL FUMARATE
  7. METHIMAZOLE [Concomitant]
     Active Substance: METHIMAZOLE
  8. FOLIC ACID [Concomitant]
     Active Substance: FOLIC ACID
  9. SULFATRIM [Concomitant]
     Active Substance: SULFAMETHOXAZOLE\TRIMETHOPRIM
  10. NORTRIPTYLINE [Concomitant]
     Active Substance: NORTRIPTYLINE
  11. DULOXETINE [Concomitant]
     Active Substance: DULOXETINE
  12. ZOPICLONE [Concomitant]
     Active Substance: ZOPICLONE
  13. OZEMPIC [Concomitant]
     Active Substance: SEMAGLUTIDE
  14. PROLEAK [Concomitant]

REACTIONS (7)
  - Thyroid cancer [Not Recovered/Not Resolved]
  - Dyspnoea [Recovering/Resolving]
  - Autoimmune disorder [Unknown]
  - Headache [Recovered/Resolved]
  - Poor venous access [Unknown]
  - High frequency ablation [Recovering/Resolving]
  - Pain [Recovering/Resolving]

NARRATIVE: CASE EVENT DATE: 20240501
